FAERS Safety Report 11858548 (Version 2)
Quarter: 2015Q4

REPORT INFORMATION
  Report Type: Spontaneous
  Country: US (occurrence: US)
  Receive Date: 20151222
  Receipt Date: 20151231
  Transmission Date: 20160305
  Serious: No
  Sender: FDA-Public Use
  Company Number: US-BAYER-2015-493619

PATIENT
  Age: 1 Year
  Sex: Male
  Weight: 12.25 kg

DRUGS (1)
  1. ALEVE [Suspect]
     Active Substance: NAPROXEN SODIUM
     Dosage: 1 DF, ONCE
     Route: 048
     Dates: start: 20151221, end: 20151221

REACTIONS (2)
  - Accidental exposure to product by child [None]
  - Accidental exposure to product by child [None]

NARRATIVE: CASE EVENT DATE: 20151221
